FAERS Safety Report 8180554-2 (Version None)
Quarter: 2012Q1

REPORT INFORMATION
  Report Type: 
  Country: None (occurrence: None)
  Receive Date: 20120224
  Receipt Date: 20120209
  Transmission Date: 20120608
  Serious: Yes (Other)
  Sender: FDA-Public Use
  Company Number: 2012031105

PATIENT
  Age: 56 Year
  Sex: Female
  Weight: 60.782 kg

DRUGS (15)
  1. HIZENTRA [Suspect]
     Indication: IMMUNODEFICIENCY COMMON VARIABLE
     Dosage: (8 G 1X/WEEK, 4 GM 20 ML VIAL; 40 ML IN 3 SITES FOR 1-2 HOURS SUBCUTANEOUS)
     Route: 058
  2. VITAMIN D [Concomitant]
  3. FIORICET [Concomitant]
  4. MULTIVITAMIN (ACCOMIN MULTIVITAMIN) [Concomitant]
  5. FAMOTIDINE [Concomitant]
  6. PATANASE [Concomitant]
  7. ZOMIG [Concomitant]
  8. SINGULAIR [Concomitant]
  9. NYSTATIN [Concomitant]
  10. ZYRTEC [Concomitant]
  11. ACETAMINOPHEN [Concomitant]
  12. ASPIRIN [Concomitant]
  13. EFFEXOR [Concomitant]
  14. LAMICTAL [Concomitant]
  15. PROAIR (PROCATEROL HYDROCHLORIDE) [Concomitant]

REACTIONS (1)
  - PNEUMONIA [None]
